FAERS Safety Report 9152193 (Version 1)
Quarter: 2013Q1

REPORT INFORMATION
  Report Type: Spontaneous
  Country: US (occurrence: US)
  Receive Date: 20130308
  Receipt Date: 20130308
  Transmission Date: 20140127
  Serious: No
  Sender: FDA-Public Use
  Company Number: US-ASTRAZENECA-2013SE09922

PATIENT
  Age: 49 Year
  Sex: Male
  Weight: 79.4 kg

DRUGS (4)
  1. CRESTOR [Suspect]
     Indication: BLOOD CHOLESTEROL ABNORMAL
     Route: 048
  2. CRESTOR [Suspect]
     Indication: BLOOD CHOLESTEROL ABNORMAL
     Route: 048
  3. ATIVAN [Concomitant]
  4. STATIN [Concomitant]

REACTIONS (2)
  - Myalgia [Recovering/Resolving]
  - Off label use [Unknown]
